FAERS Safety Report 5165677-4 (Version None)
Quarter: 2006Q4

REPORT INFORMATION
  Report Type: 
  Country: None (occurrence: None)
  Receive Date: 20061128
  Receipt Date: 20061113
  Transmission Date: 20070319
  Serious: Yes (Disabling)
  Sender: FDA-Public Use
  Company Number: S06-CAN-04897-01

PATIENT
  Sex: Male

DRUGS (3)
  1. CELEXA [Suspect]
     Indication: ABNORMAL BEHAVIOUR
     Dates: start: 20060101
  2. RISPERIDONE [Concomitant]
  3. CLONIDINE [Concomitant]

REACTIONS (2)
  - BLINDNESS [None]
  - MACULAR DEGENERATION [None]
